FAERS Safety Report 9733750 (Version 1)
Quarter: 2013Q4

REPORT INFORMATION
  Report Type: Spontaneous
  Country: CA (occurrence: CA)
  Receive Date: 20131205
  Receipt Date: 20131205
  Transmission Date: 20140711
  Serious: Yes (Other)
  Sender: FDA-Public Use
  Company Number: CA-BAYER-2013-145548

PATIENT
  Age: 56 Year
  Sex: Female
  Weight: 58.96 kg

DRUGS (7)
  1. CIPRO XL [Suspect]
     Dosage: 1000 MG, QD
     Route: 048
  2. ANAFRANIL [Concomitant]
  3. ASA [Concomitant]
  4. CYMBALTA [Concomitant]
  5. DULCOLAX PICOSULFAT [Concomitant]
  6. RELAXA [ACETYLSALICYLIC ACID,ALUMINIUM HYDROXIDE,CODEINE,PARACETAM [Concomitant]
  7. SYMBICORT [Concomitant]

REACTIONS (1)
  - Myopathy [Not Recovered/Not Resolved]
